FAERS Safety Report 25003834 (Version 1)
Quarter: 2025Q1

REPORT INFORMATION
  Report Type: Spontaneous
  Country: US (occurrence: None)
  Receive Date: 20250221
  Receipt Date: 20250221
  Transmission Date: 20250408
  Serious: Yes (Hospitalization)
  Sender: FDA-CTU
  Company Number: None

PATIENT
  Age: 86 Year
  Sex: Male
  Weight: 61.5 kg

DRUGS (3)
  1. PEMBROLIZUMAB [Suspect]
     Active Substance: PEMBROLIZUMAB
     Indication: Prostate cancer metastatic
     Route: 042
     Dates: start: 20241206, end: 20250124
  2. ENZALUTAMIDE [Concomitant]
     Active Substance: ENZALUTAMIDE
  3. 225Ac-J591 PSMA radio-isotope [Concomitant]

REACTIONS (7)
  - Asthenia [None]
  - Hypophagia [None]
  - Leukocytosis [None]
  - Urinary tract infection [None]
  - SARS-CoV-2 test positive [None]
  - Sepsis [None]
  - Pneumonia [None]

NARRATIVE: CASE EVENT DATE: 20250217
